FAERS Safety Report 21227888 (Version 1)
Quarter: 2022Q3

REPORT INFORMATION
  Report Type: Spontaneous
  Country: US (occurrence: US)
  Receive Date: 20220818
  Receipt Date: 20220818
  Transmission Date: 20221027
  Serious: No
  Sender: FDA-Public Use
  Company Number: US-TAKEDA-2022TUS056562

PATIENT
  Sex: Female

DRUGS (1)
  1. LIALDA [Suspect]
     Active Substance: MESALAMINE
     Indication: Inflammation
     Dosage: 1.2 GRAM
     Route: 065

REACTIONS (3)
  - Off label use [Unknown]
  - Product use complaint [Unknown]
  - No adverse event [Unknown]
